FAERS Safety Report 23346533 (Version 6)
Quarter: 2024Q4

REPORT INFORMATION
  Report Type: Spontaneous
  Country: US (occurrence: US)
  Receive Date: 20231228
  Receipt Date: 20241003
  Transmission Date: 20250115
  Serious: Yes (Hospitalization, Other)
  Sender: RANBAXY
  Company Number: US-SUN PHARMACEUTICAL INDUSTRIES LTD-2023R1-425238

PATIENT
  Sex: Female

DRUGS (3)
  1. ODOMZO [Suspect]
     Active Substance: SONIDEGIB
     Indication: Basal cell carcinoma
     Dosage: 200 MILLIGRAM, DAILY
     Route: 048
     Dates: start: 20240113
  2. ODOMZO [Suspect]
     Active Substance: SONIDEGIB
     Dosage: UNK
     Route: 048
     Dates: end: 20240229
  3. ATORVASTATIN [Suspect]
     Active Substance: ATORVASTATIN
     Indication: Product used for unknown indication
     Dosage: UNK
     Route: 065

REACTIONS (7)
  - Fall [Unknown]
  - Fracture [Unknown]
  - Biliary dilatation [Unknown]
  - Therapy cessation [Unknown]
  - Hepatic enzyme abnormal [Unknown]
  - Blood cholesterol increased [Unknown]
  - Liver disorder [Unknown]
